FAERS Safety Report 9322828 (Version 2)
Quarter: 2015Q2

REPORT INFORMATION
  Report Type: Report from Study
  Country: HU (occurrence: HU)
  Receive Date: 20130602
  Receipt Date: 20150624
  Transmission Date: 20150821
  Serious: Yes (Hospitalization, Other)
  Sender: FDA-Public Use
  Company Number: HU-BRISTOL-MYERS SQUIBB COMPANY-18723106

PATIENT
  Age: 60 Year
  Sex: Female

DRUGS (5)
  1. PROPANOL [Concomitant]
     Active Substance: PROPRANOLOL HYDROCHLORIDE
     Indication: PRODUCT USED FOR UNKNOWN INDICATION
     Dosage: UNK
     Route: 065
     Dates: start: 201206
  2. IPILIMUMAB [Suspect]
     Active Substance: IPILIMUMAB
     Indication: SMALL CELL LUNG CANCER
     Dosage: 20FEB2013 + 13-MAR-2013
     Route: 042
     Dates: start: 20130220, end: 20130313
  3. ETOPOSIDE. [Suspect]
     Active Substance: ETOPOSIDE
     Indication: SMALL CELL LUNG CANCER
     Dosage: 7JAN13-9JAN13,28JAN13-30JAN13,18FEB13-20FEB13+ 11MAR13-13MAR13,NO. OF COURSES:3
     Route: 042
     Dates: start: 20130107, end: 20130313
  4. CISPLATIN. [Suspect]
     Active Substance: CISPLATIN
     Indication: SMALL CELL LUNG CANCER
     Dosage: 7JAN13-7JAN13,28JAN13-28JAN13,18FEB13-18FEB13+ 11MAR13-11MAR13,NO. OF COURSES:1
     Route: 042
     Dates: start: 20130107, end: 20130311
  5. THIAMAZOLE [Concomitant]
     Active Substance: METHIMAZOLE
     Indication: PRODUCT USED FOR UNKNOWN INDICATION
     Dosage: UNK
     Route: 065
     Dates: start: 101206

REACTIONS (1)
  - Thrombosis [Recovered/Resolved]

NARRATIVE: CASE EVENT DATE: 20130325
